FAERS Safety Report 9244580 (Version 5)
Quarter: 2013Q3

REPORT INFORMATION
  Report Type: Report from Study
  Country: DE (occurrence: DE)
  Receive Date: 20130422
  Receipt Date: 20130917
  Transmission Date: 20140515
  Serious: Yes (Hospitalization, Other)
  Sender: FDA-Public Use
  Company Number: PHHY2013DE037087

PATIENT
  Sex: Female
  Weight: 85 kg

DRUGS (3)
  1. AFINITOR [Suspect]
     Indication: BREAST CANCER METASTATIC
     Dosage: 10 MG, QD
     Route: 048
     Dates: start: 20130301, end: 20130411
  2. EXEMESTAN [Concomitant]
     Indication: BREAST CANCER METASTATIC
     Dosage: 25 MG, QD
     Route: 048
     Dates: start: 20130301, end: 20130410
  3. EXEMESTAN [Concomitant]
     Dosage: 25 MG, QD
     Route: 048
     Dates: start: 20130416

REACTIONS (11)
  - Pneumonia [Unknown]
  - Pyrexia [Unknown]
  - Cough [Unknown]
  - C-reactive protein increased [Unknown]
  - Vomiting [Recovered/Resolved]
  - Nausea [Recovered/Resolved]
  - Hypophosphataemia [Not Recovered/Not Resolved]
  - Pain [Recovered/Resolved]
  - Peripheral vascular disorder [Recovered/Resolved]
  - Stomatitis [Recovered/Resolved]
  - Asthenia [Recovered/Resolved]
